FAERS Safety Report 7715829-1 (Version None)
Quarter: 2011Q3

REPORT INFORMATION
  Report Type: 
  Country: None (occurrence: None)
  Receive Date: 20110829
  Receipt Date: 20110829
  Transmission Date: 20111222
  Serious: No
  Sender: FDA-Public Use
  Company Number: None

PATIENT
  Age: 28 Year
  Sex: Female
  Weight: 83.914 kg

DRUGS (1)
  1. BOTOX [Suspect]
     Indication: SKIN COSMETIC PROCEDURE
     Dosage: 16 UNITS
     Dates: start: 20110823, end: 20110823

REACTIONS (4)
  - INFLUENZA LIKE ILLNESS [None]
  - COUGH [None]
  - SINUS CONGESTION [None]
  - OROPHARYNGEAL PAIN [None]
